FAERS Safety Report 5338731-1 (Version None)
Quarter: 2007Q2

REPORT INFORMATION
  Report Type: 
  Country: None (occurrence: None)
  Receive Date: 20070530
  Receipt Date: 20070530
  Transmission Date: 20071010
  Serious: Yes (Other)
  Sender: FDA-Public Use
  Company Number: D0051499A

PATIENT
  Age: 41 Year
  Sex: Male
  Weight: 160 kg

DRUGS (3)
  1. LAMICTAL [Suspect]
     Indication: EPILEPSY
     Dosage: 200MG TWICE PER DAY
     Route: 048
     Dates: start: 20051001, end: 20061101
  2. KEPPRA [Concomitant]
     Indication: EPILEPSY
     Dosage: 1000MG TWICE PER DAY
     Route: 065
     Dates: start: 20030101
  3. SERTRALINE [Concomitant]
     Indication: DEPRESSION
     Dosage: 50MG IN THE MORNING
     Route: 065
     Dates: start: 20060101

REACTIONS (6)
  - ABDOMINAL PAIN [None]
  - DIARRHOEA [None]
  - DRUG INTOLERANCE [None]
  - DYSPEPSIA [None]
  - NAUSEA [None]
  - REACTION TO FOOD ADDITIVE [None]
